FAERS Safety Report 7044025-9 (Version None)
Quarter: 2010Q4

REPORT INFORMATION
  Report Type: 
  Country: None (occurrence: None)
  Receive Date: 20101013
  Receipt Date: 20101013
  Transmission Date: 20110411
  Serious: Yes (Other)
  Sender: FDA-Public Use
  Company Number: None

PATIENT
  Sex: Female
  Weight: 74.8435 kg

DRUGS (2)
  1. RECLAST [Suspect]
     Indication: OSTEOPOROSIS
     Dosage: 5 MG. 1X/YEAR IV DRIP
     Route: 041
     Dates: start: 20090901, end: 20100825
  2. RECLAST [Suspect]
     Indication: OSTEOPOROSIS
     Dosage: 5 MG. 1X/YEAR IV DRIP
     Route: 041
     Dates: start: 20100825, end: 20100825

REACTIONS (7)
  - ABDOMINAL DISTENSION [None]
  - ARTHRALGIA [None]
  - BLOOD PRESSURE INCREASED [None]
  - FLUID RETENTION [None]
  - GAIT DISTURBANCE [None]
  - MUSCLE SPASMS [None]
  - PAIN IN EXTREMITY [None]
